FAERS Safety Report 14968887 (Version 2)
Quarter: 2018Q4

REPORT INFORMATION
  Report Type: Spontaneous
  Country: SE (occurrence: SE)
  Receive Date: 20180604
  Receipt Date: 20181016
  Transmission Date: 20190204
  Serious: Yes (Other)
  Sender: FDA-Public Use
  Company Number: SE-SA-2018SA133552

PATIENT
  Age: 50 Year
  Sex: Male

DRUGS (2)
  1. CERDELGA [Suspect]
     Active Substance: ELIGLUSTAT
     Indication: GAUCHER^S DISEASE TYPE I
     Dosage: UNK UNK,UNK
     Route: 048
     Dates: start: 2011, end: 201801
  2. VENTOLINE ROTACAPS [Concomitant]
     Dosage: UNK
     Route: 065

REACTIONS (7)
  - Ventricular extrasystoles [Unknown]
  - Atrial fibrillation [Unknown]
  - Mental fatigue [Unknown]
  - Gastrointestinal disorder [Unknown]
  - Fatigue [Unknown]
  - Malaise [Unknown]
  - Hepatic enzyme increased [Unknown]

NARRATIVE: CASE EVENT DATE: 201610
